FAERS Safety Report 5352208-9 (Version None)
Quarter: 2007Q2

REPORT INFORMATION
  Report Type: 
  Country: None (occurrence: None)
  Receive Date: 20070524
  Receipt Date: 20070221
  Transmission Date: 20071010
  Serious: No
  Sender: FDA-Public Use
  Company Number: WAES 0702USA03878

PATIENT
  Age: 75 Year
  Sex: Male

DRUGS (7)
  1. JANUVIA [Suspect]
     Indication: DIABETES MELLITUS NON-INSULIN-DEPENDENT
     Dosage: 100 MG/DAILY/PO
     Route: 048
     Dates: start: 20070221
  2. ACTOS [Concomitant]
  3. ALTACE [Concomitant]
  4. NORVASC [Concomitant]
  5. VALIUM [Concomitant]
  6. CLONIDINE [Concomitant]
  7. SPIRONOLACTONE [Concomitant]

REACTIONS (1)
  - TINNITUS [None]
